FAERS Safety Report 7142309-7 (Version None)
Quarter: 2010Q4

REPORT INFORMATION
  Report Type: 
  Country: None (occurrence: None)
  Receive Date: 20101203
  Receipt Date: 20101203
  Transmission Date: 20110411
  Serious: Yes (Death)
  Sender: FDA-Public Use
  Company Number: None

PATIENT
  Age: 4 Month
  Sex: Male
  Weight: 5.4432 kg

DRUGS (1)
  1. HYLAND TEETHING TABLETS [Suspect]
     Indication: TEETHING
     Dosage: 1 OR 2 TABLETS AS NEEDED PO
     Route: 048
     Dates: start: 20101013, end: 20101016

REACTIONS (1)
  - RESPIRATORY ARREST [None]
